FAERS Safety Report 7295105-4 (Version None)
Quarter: 2011Q1

REPORT INFORMATION
  Report Type: 
  Country: None (occurrence: None)
  Receive Date: 20110216
  Receipt Date: 20110207
  Transmission Date: 20110831
  Serious: Yes (Hospitalization)
  Sender: FDA-Public Use
  Company Number: US-NAPPMUNDI-USA-2010-0062664

PATIENT
  Sex: Female

DRUGS (5)
  1. OXYCONTIN [Suspect]
     Indication: INTERVERTEBRAL DISC DEGENERATION
     Dosage: 20 MG, TID
     Route: 048
     Dates: start: 20101101, end: 20110215
  2. OXYCONTIN [Suspect]
     Dosage: 30 MG, BID
     Route: 048
     Dates: start: 20110204
  3. TRAMADOL (SIMILAR TO NDA 21-745) [Concomitant]
     Indication: PRODUCT USED FOR UNKNOWN INDICATION
  4. FLEXERIL [Concomitant]
     Indication: PRODUCT USED FOR UNKNOWN INDICATION
  5. LORAZEPAM [Concomitant]
     Indication: PRODUCT USED FOR UNKNOWN INDICATION

REACTIONS (4)
  - PAIN [None]
  - ABNORMAL BEHAVIOUR [None]
  - INADEQUATE ANALGESIA [None]
  - DRUG WITHDRAWAL SYNDROME [None]
